FAERS Safety Report 24110490 (Version 1)
Quarter: 2024Q3

REPORT INFORMATION
  Report Type: Spontaneous
  Country: US (occurrence: US)
  Receive Date: 20240718
  Receipt Date: 20240718
  Transmission Date: 20241016
  Serious: No
  Sender: PFIZER
  Company Number: US-PFIZER INC-202400216276

PATIENT
  Age: 27 Year
  Sex: Female
  Weight: 99.79 kg

DRUGS (1)
  1. SILVADENE [Suspect]
     Active Substance: SILVER SULFADIAZINE
     Indication: Thermal burn
     Dosage: UNKNOWN DOSE; APPLIED IT ONCE
     Dates: start: 20240715

REACTIONS (2)
  - Poor quality product administered [Unknown]
  - Product colour issue [Unknown]

NARRATIVE: CASE EVENT DATE: 20240715
